FAERS Safety Report 7194099-X (Version None)
Quarter: 2010Q4

REPORT INFORMATION
  Report Type: 
  Country: None (occurrence: None)
  Receive Date: 20101124
  Receipt Date: 20100916
  Transmission Date: 20110411
  Serious: No
  Sender: FDA-Public Use
  Company Number: 018993

PATIENT
  Sex: Female
  Weight: 68 kg

DRUGS (3)
  1. LACOSAMIDE [Suspect]
     Indication: EPILEPSY
     Dosage: (150 MG BID ORAL)
     Route: 048
     Dates: start: 20100101
  2. KEPPRA [Suspect]
     Indication: EPILEPSY
     Dosage: (1000 MG BID ORAL)
     Route: 048
     Dates: start: 20080101
  3. LYRICA [Suspect]
     Indication: FIBROMYALGIA
     Dosage: (300 MG QID ORAL)
     Route: 048
     Dates: start: 20090101

REACTIONS (5)
  - CONVULSION [None]
  - DYSARTHRIA [None]
  - PNEUMONIA [None]
  - RESPIRATORY TRACT CONGESTION [None]
  - WEIGHT DECREASED [None]
